FAERS Safety Report 9494065 (Version 1)
Quarter: 2013Q3

REPORT INFORMATION
  Report Type: Report from Study
  Country: BE (occurrence: BE)
  Receive Date: 20130903
  Receipt Date: 20130903
  Transmission Date: 20140515
  Serious: Yes (Other)
  Sender: FDA-Public Use
  Company Number: BE-AMGEN-BELCT2013061246

PATIENT
  Age: 60 Year
  Sex: Female

DRUGS (2)
  1. ETANERCEPT [Suspect]
     Indication: RHEUMATOID ARTHRITIS
     Dosage: 50 MG, 1X/WK
     Route: 058
     Dates: start: 2003, end: 2009
  2. ETANERCEPT [Suspect]
     Dosage: 25 MG, 1X/WK
     Route: 058
     Dates: start: 2009, end: 2009

REACTIONS (1)
  - Hypersensitivity [Recovered/Resolved]
